FAERS Safety Report 21108673 (Version 1)
Quarter: 2022Q3

REPORT INFORMATION
  Report Type: Spontaneous
  Country: PL (occurrence: PL)
  Receive Date: 20220721
  Receipt Date: 20220721
  Transmission Date: 20221026
  Serious: Yes (Death)
  Sender: FDA-Public Use
  Company Number: None

PATIENT
  Age: 76 Year
  Sex: Male
  Weight: 79 kg

DRUGS (6)
  1. CISPLATIN [Suspect]
     Active Substance: CISPLATIN
     Indication: Malignant respiratory tract neoplasm
     Dosage: STRENGTH: 50 MG/ 50 ML, 138MG
     Route: 065
     Dates: start: 20220520, end: 20220520
  2. FUROSEMIDE [Concomitant]
     Active Substance: FUROSEMIDE
     Indication: Malignant respiratory tract neoplasm
     Dosage: 40MG, FREQUENCY TIME 1DAYS, DURATION 2DAYS
     Dates: start: 20220519, end: 20220521
  3. AKYNZEO [Concomitant]
     Indication: Malignant respiratory tract neoplasm
     Dosage: DOSE: 300 MG + 0.5 MG
     Dates: start: 20220520, end: 20220520
  4. METOCLOPRAMIDE [Concomitant]
     Active Substance: METOCLOPRAMIDE
     Indication: Malignant respiratory tract neoplasm
     Dosage: 2 X 1 AMPOULE,DURATION 1DAYS
     Dates: start: 20220520, end: 20220521
  5. DEXAMETHASONE [Concomitant]
     Active Substance: DEXAMETHASONE
     Indication: Malignant respiratory tract neoplasm
     Dosage: 4MG, FREQUENCY TIME 8HRS,DURATION 1DAYS
     Dates: start: 20220520, end: 20220521
  6. NAVELBINE [Concomitant]
     Active Substance: VINORELBINE TARTRATE
     Indication: Malignant respiratory tract neoplasm
     Dosage: 110MG
     Dates: start: 20220520, end: 20220520

REACTIONS (4)
  - White blood cell count decreased [Fatal]
  - Platelet count decreased [Fatal]
  - Haemoglobin decreased [Fatal]
  - Neutropenia [Fatal]

NARRATIVE: CASE EVENT DATE: 20220601
